FAERS Safety Report 5403244-5 (Version None)
Quarter: 2007Q3

REPORT INFORMATION
  Report Type: 
  Country: None (occurrence: None)
  Receive Date: 20070713
  Receipt Date: 20070108
  Transmission Date: 20080115
  Serious: Yes (Hospitalization, Other)
  Sender: FDA-Public Use
  Company Number: US-JNJFOC-20061201521

PATIENT
  Age: 32 Year
  Sex: Female
  Weight: 63.5036 kg

DRUGS (2)
  1. ORTHO EVRA [Suspect]
     Indication: CONTRACEPTION
     Dosage: 1 DOSE(S), IN 1 WEEK, TRANSDERMAL
     Route: 062
     Dates: start: 20030501, end: 20041001
  2. ORTHO EVRA [Suspect]
     Indication: MIGRAINE
     Dosage: 1 DOSE(S), IN 1 WEEK, TRANSDERMAL
     Route: 062
     Dates: start: 20030501, end: 20041001

REACTIONS (3)
  - CEREBRAL INFARCTION [None]
  - INAPPROPRIATE SCHEDULE OF DRUG ADMINISTRATION [None]
  - INTENTIONAL DRUG MISUSE [None]
